FAERS Safety Report 12441275 (Version 1)
Quarter: 2016Q2

REPORT INFORMATION
  Report Type: Spontaneous
  Country: None (occurrence: None)
  Receive Date: 20160606
  Receipt Date: 20160606
  Transmission Date: 20160815
  Serious: Yes (Hospitalization)
  Sender: FDA-Public Use
  Company Number: None

PATIENT
  Age: 83 Year
  Sex: Male
  Weight: 61.7 kg

DRUGS (1)
  1. WARFARIN, 3 MG [Suspect]
     Active Substance: WARFARIN SODIUM
     Indication: ATRIAL FIBRILLATION
     Route: 048

REACTIONS (2)
  - Lower gastrointestinal haemorrhage [None]
  - Haematochezia [None]

NARRATIVE: CASE EVENT DATE: 20160602
